FAERS Safety Report 21026873 (Version 4)
Quarter: 2023Q2

REPORT INFORMATION
  Report Type: Report from Study
  Country: DE (occurrence: DE)
  Receive Date: 20220630
  Receipt Date: 20230417
  Transmission Date: 20230722
  Serious: Yes (Hospitalization)
  Sender: FDA-Public Use
  Company Number: DE-JNJFOC-20220650176

PATIENT
  Age: 81 Year
  Sex: Male
  Weight: 59 kg

DRUGS (4)
  1. BORTEZOMIB [Suspect]
     Active Substance: BORTEZOMIB
     Indication: Waldenstrom^s macroglobulinaemia
     Dosage: 1.6 MILLIGRAM/SQ. METER
     Route: 058
     Dates: start: 20211111
  2. IBRUTINIB [Suspect]
     Active Substance: IBRUTINIB
     Indication: Waldenstrom^s macroglobulinaemia
     Dosage: 420 MILLIGRAM, QD
     Route: 048
     Dates: start: 20211111
  3. RITUXIMAB [Suspect]
     Active Substance: RITUXIMAB
     Indication: Waldenstrom^s macroglobulinaemia
     Dosage: 1400 MILLIGRAM
     Route: 058
     Dates: start: 20211209, end: 20220426
  4. RITUXIMAB [Suspect]
     Active Substance: RITUXIMAB
     Indication: Waldenstrom^s macroglobulinaemia
     Dosage: 375 MILLIGRAM/SQ. METER
     Route: 042
     Dates: start: 20211111, end: 20211111

REACTIONS (1)
  - Polyneuropathy [Recovering/Resolving]

NARRATIVE: CASE EVENT DATE: 20220509
